FAERS Safety Report 7398046-7 (Version None)
Quarter: 2011Q2

REPORT INFORMATION
  Report Type: 
  Country: None (occurrence: None)
  Receive Date: 20110406
  Receipt Date: 20110323
  Transmission Date: 20111010
  Serious: Yes (Other)
  Sender: FDA-Public Use
  Company Number: CA-JNJFOC-20101200333

PATIENT
  Sex: Male
  Weight: 73 kg

DRUGS (6)
  1. HYDROCORTISONE [Concomitant]
     Indication: PREMEDICATION
     Route: 042
  2. CALCIUM [Concomitant]
     Route: 048
  3. POTASSIUM CHLORIDE [Concomitant]
  4. MULTI-VITAMINS [Concomitant]
     Route: 048
  5. REMICADE [Suspect]
     Indication: CROHN'S DISEASE
     Route: 042
  6. REMICADE [Suspect]
     Dosage: 9TH INFUSION
     Route: 042

REACTIONS (2)
  - INFLUENZA [None]
  - HERPES ZOSTER [None]
